FAERS Safety Report 12207767 (Version 1)
Quarter: 2016Q1

REPORT INFORMATION
  Report Type: Spontaneous
  Country: US (occurrence: US)
  Receive Date: 20160324
  Receipt Date: 20160324
  Transmission Date: 20160526
  Serious: Yes (Hospitalization, Other)
  Sender: FDA-Public Use
  Company Number: US-ASTRAZENECA-2016SE31017

PATIENT
  Sex: Male
  Weight: 74.8 kg

DRUGS (3)
  1. SEROQUEL [Suspect]
     Active Substance: QUETIAPINE FUMARATE
     Indication: SCHIZOPHRENIA
     Route: 048
     Dates: start: 1998, end: 2006
  2. SEROQUEL [Suspect]
     Active Substance: QUETIAPINE FUMARATE
     Indication: SCHIZOPHRENIA
     Route: 048
     Dates: start: 20160308
  3. SEROQUEL [Suspect]
     Active Substance: QUETIAPINE FUMARATE
     Indication: SCHIZOPHRENIA
     Dosage: QUETIAPINE, 200 MG; AT NIGHT
     Route: 048
     Dates: start: 2006, end: 20160308

REACTIONS (5)
  - Fall [Unknown]
  - Malnutrition [Unknown]
  - Diarrhoea [Unknown]
  - Loss of consciousness [Unknown]
  - Hallucination [Unknown]
